FAERS Safety Report 8110642 (Version 15)
Quarter: 2012Q4

REPORT INFORMATION
  Report Type: 
  Country: CA (occurrence: CA)
  Receive Date: 20110829
  Receipt Date: 20120911
  Transmission Date: 20130627
  Serious: Yes (Death, Hospitalization, Other)
  Sender: FDA-Public Use
  Company Number: PHHY2011CA27489

PATIENT
  Sex: Male

DRUGS (4)
  1. SANDOSTATIN LAR [Suspect]
     Indication: NEUROENDOCRINE TUMOUR
     Dosage: 20 mg, once in a month
     Route: 030
     Dates: start: 20110228
  2. SANDOSTATIN LAR [Suspect]
     Dosage: 30 mg, every 3 weeks
     Route: 030
     Dates: end: 20120830
  3. SANDOSTATIN [Suspect]
     Route: 058
  4. SUTENT [Concomitant]

REACTIONS (32)
  - Death [Fatal]
  - Loss of consciousness [Unknown]
  - Syncope [Unknown]
  - Pleural effusion [Unknown]
  - Chromaturia [Recovered/Resolved]
  - Bile duct obstruction [Unknown]
  - Abdominal pain [Unknown]
  - Abdominal mass [Unknown]
  - Dyspnoea [Unknown]
  - Fatigue [Unknown]
  - Restlessness [Unknown]
  - Agitation [Unknown]
  - Discomfort [Unknown]
  - Cardiac failure congestive [Unknown]
  - Confusional state [Not Recovered/Not Resolved]
  - Lethargy [Not Recovered/Not Resolved]
  - Urinary incontinence [Unknown]
  - Weight decreased [Unknown]
  - Jaundice [Not Recovered/Not Resolved]
  - Ascites [Unknown]
  - Cough [Unknown]
  - Joint swelling [Not Recovered/Not Resolved]
  - Blood pressure increased [Unknown]
  - Micturition disorder [Unknown]
  - Pain in extremity [Unknown]
  - Decreased appetite [Unknown]
  - Heart rate decreased [Unknown]
  - Asthenia [Unknown]
  - Constipation [Unknown]
  - Dehydration [Unknown]
  - Blood bilirubin increased [Unknown]
  - Malaise [Unknown]
